FAERS Safety Report 9711248 (Version 3)
Quarter: 2014Q2

REPORT INFORMATION
  Report Type: Spontaneous
  Country: US (occurrence: US)
  Receive Date: 20131126
  Receipt Date: 20140510
  Transmission Date: 20141212
  Serious: No
  Sender: FDA-Public Use
  Company Number: US-BRISTOL-MYERS SQUIBB COMPANY-19048131

PATIENT
  Age: 56 Year
  Sex: Female
  Weight: 78.91 kg

DRUGS (10)
  1. BYDUREON [Suspect]
     Indication: TYPE 2 DIABETES MELLITUS
     Dosage: DURATION-LITTLE LESS THAN A YEAR
     Route: 058
     Dates: start: 201207, end: 20130606
  2. KLONOPIN [Concomitant]
     Indication: NAUSEA
  3. KLONOPIN [Concomitant]
     Indication: SLEEP DISORDER
  4. PROMETHAZINE [Concomitant]
     Indication: NAUSEA
  5. PROMETHAZINE [Concomitant]
     Indication: SLEEP DISORDER
  6. GLUCOPHAGE [Concomitant]
  7. HYDROCHLOROTHIAZIDE [Concomitant]
  8. PROZAC [Concomitant]
  9. ESTROGEN [Concomitant]
     Route: 067
  10. TESTOSTERONE [Concomitant]

REACTIONS (5)
  - Rash papular [Not Recovered/Not Resolved]
  - Injection site swelling [Unknown]
  - Injection site mass [Unknown]
  - Abdominal pain upper [Unknown]
  - Abdominal distension [Unknown]
